FAERS Safety Report 4365565-7 (Version None)
Quarter: 2004Q2

REPORT INFORMATION
  Report Type: 
  Country: None (occurrence: None)
  Receive Date: 20040526
  Receipt Date: 20040318
  Transmission Date: 20050107
  Serious: Yes (Hospitalization)
  Sender: FDA-Public Use
  Company Number: US-BRISTOL-MYERS SQUIBB COMPANY-12536132

PATIENT
  Age: 69 Year
  Sex: Male

DRUGS (10)
  1. LOMUSTINE [Suspect]
     Indication: BRAIN NEOPLASM MALIGNANT
     Route: 048
     Dates: start: 20021227, end: 20030124
  2. VINCRISTINE SULFATE [Suspect]
     Indication: BRAIN NEOPLASM MALIGNANT
     Dates: start: 20030103, end: 20030124
  3. TRANXENE [Suspect]
     Route: 048
     Dates: start: 20021206, end: 20030130
  4. VALPROIC ACID [Suspect]
     Indication: BRAIN NEOPLASM MALIGNANT
     Route: 048
     Dates: start: 20021206, end: 20030130
  5. PROCARBAZINE HCL [Suspect]
     Indication: BRAIN NEOPLASM MALIGNANT
     Route: 048
     Dates: start: 20030103, end: 20030116
  6. CEFOTAXIME SODIUM [Suspect]
     Dates: start: 20030119, end: 20030123
  7. ACETAMINOPHEN AND CODEINE PHOSPHATE [Suspect]
     Route: 048
     Dates: start: 20021206, end: 20030130
  8. PREDNISOLONE [Suspect]
     Dates: start: 20021206, end: 20030225
  9. POTASSIUM CHLORIDE [Concomitant]
     Route: 048
     Dates: start: 20021206
  10. OMEPRAZOLE [Concomitant]
     Route: 048
     Dates: start: 20021206

REACTIONS (9)
  - BONE MARROW DEPRESSION [None]
  - CHILLS [None]
  - CHOLANGITIS [None]
  - CIRCULATORY COLLAPSE [None]
  - HEPATITIS CHOLESTATIC [None]
  - HYPERTHERMIA [None]
  - PURPURA [None]
  - PYREXIA [None]
  - TOXIC EPIDERMAL NECROLYSIS [None]
